FAERS Safety Report 6683131-5 (Version None)
Quarter: 2010Q2

REPORT INFORMATION
  Report Type: 
  Country: None (occurrence: None)
  Receive Date: 20100415
  Receipt Date: 20100412
  Transmission Date: 20101027
  Serious: Yes (Other)
  Sender: FDA-Public Use
  Company Number: NZ-ROXANE LABORATORIES, INC.-2010-RO-00404RO

PATIENT
  Age: 12 Year
  Sex: Male

DRUGS (5)
  1. DIAZEPAM [Suspect]
     Indication: PREMEDICATION
  2. TRAMADOL HCL [Suspect]
     Indication: INDUCTION OF ANAESTHESIA
  3. HALOTHANE [Suspect]
     Indication: MAINTENANCE OF ANAESTHESIA
  4. NITROUS OXIDE [Suspect]
     Indication: MAINTENANCE OF ANAESTHESIA
  5. ACETAMINOPHEN AND CODEINE PHOSPHATE [Concomitant]
     Indication: POSTOPERATIVE ANALGESIA

REACTIONS (1)
  - VENTRICULAR EXTRASYSTOLES [None]
